FAERS Safety Report 9367812 (Version 1)
Quarter: 2013Q2

REPORT INFORMATION
  Report Type: Spontaneous
  Country: US (occurrence: US)
  Receive Date: 20130625
  Receipt Date: 20130625
  Transmission Date: 20140414
  Serious: No
  Sender: FDA-Public Use
  Company Number: US-ASTELLAS-2012US009924

PATIENT
  Sex: Female
  Weight: 82 kg

DRUGS (1)
  1. VESICARE [Suspect]
     Indication: HYPERTONIC BLADDER
     Dosage: 5 MG, UID/QD
     Route: 048
     Dates: end: 20110516

REACTIONS (5)
  - Asthma [Unknown]
  - Gingival disorder [Not Recovered/Not Resolved]
  - Oral disorder [Unknown]
  - Tooth fracture [Unknown]
  - Dry mouth [Not Recovered/Not Resolved]
